FAERS Safety Report 7557398-5 (Version None)
Quarter: 2011Q2

REPORT INFORMATION
  Report Type: 
  Country: None (occurrence: None)
  Receive Date: 20110620
  Receipt Date: 20110607
  Transmission Date: 20111010
  Serious: Yes (Hospitalization)
  Sender: FDA-Public Use
  Company Number: US-ROCHE-782581

PATIENT

DRUGS (6)
  1. FILGRASTIM [Concomitant]
     Dosage: ON DAYS 2-11
     Route: 058
     Dates: start: 20100304
  2. BLINDED BEVACIZUMAB [Suspect]
     Indication: BREAST CANCER
     Dosage: CYCLE=14 DAYS (CYCLES 1-4) OVER 30-90 MIN ON DAY 1, CYCLE=21 DAYS (CYCLES 5-8).
     Route: 042
     Dates: start: 20100304
  3. DOXORUBICIN HCL [Suspect]
     Indication: BREAST CANCER
     Dosage: IVP ON DAY 1.
     Route: 042
     Dates: start: 20100304
  4. CYCLOPHOSPHAMIDE [Suspect]
     Indication: BREAST CANCER
     Dosage: OVER 20-30 MIN ON DAY 1.
     Route: 042
     Dates: start: 20100304
  5. PEGFILGRASTIM [Concomitant]
     Dosage: ON DAY 2
     Route: 058
     Dates: start: 20100304
  6. PACLITAXEL [Suspect]
     Indication: BREAST CANCER
     Dosage: OVER 1 HR ON DAYS 1,8 AND 15.
     Route: 042
     Dates: start: 20100304

REACTIONS (3)
  - PALPITATIONS [None]
  - DIZZINESS [None]
  - HYPERSENSITIVITY [None]
